FAERS Safety Report 11116335 (Version 2)
Quarter: 2015Q2

REPORT INFORMATION
  Report Type: Spontaneous
  Country: ZA (occurrence: ZA)
  Receive Date: 20150515
  Receipt Date: 20150527
  Transmission Date: 20150821
  Serious: Yes (Death)
  Sender: FDA-Public Use
  Company Number: ZA-BAYER-2015-228594

PATIENT
  Age: 69 Year
  Sex: Female

DRUGS (1)
  1. STIVARGA [Suspect]
     Active Substance: REGORAFENIB
     Indication: COLORECTAL CANCER METASTATIC
     Dosage: 4 X 40 MG
     Route: 048
     Dates: start: 20150416, end: 20150506

REACTIONS (1)
  - Colorectal cancer metastatic [Fatal]
